FAERS Safety Report 18279232 (Version 1)
Quarter: 2020Q3

REPORT INFORMATION
  Report Type: Report from Study
  Country: US (occurrence: US)
  Receive Date: 20200917
  Receipt Date: 20200917
  Transmission Date: 20201103
  Serious: Yes (Death)
  Sender: FDA-Public Use
  Company Number: US-PFIZER INC-2020359969

PATIENT
  Sex: Female

DRUGS (1)
  1. MAGNESIUM SULFATE. [Suspect]
     Active Substance: MAGNESIUM SULFATE
     Indication: ECLAMPSIA
     Dosage: UNK
     Route: 042

REACTIONS (2)
  - Cardio-respiratory arrest [Fatal]
  - Overdose [Fatal]
